FAERS Safety Report 7835691-6 (Version None)
Quarter: 2011Q4

REPORT INFORMATION
  Report Type: 
  Country: None (occurrence: None)
  Receive Date: 20111024
  Receipt Date: 20111013
  Transmission Date: 20120403
  Serious: Yes (Hospitalization)
  Sender: FDA-Public Use
  Company Number: AU-NAPPMUNDI-USA-2011-0074920

PATIENT
  Age: 50 Year
  Sex: Female

DRUGS (7)
  1. OXYCONTIN [Suspect]
     Indication: PAIN
     Dosage: 160 MG, DAILY
     Route: 048
     Dates: end: 20110830
  2. COLOXYL WITH SENNA [Suspect]
     Indication: CONSTIPATION
     Dosage: 300 MG, DAILY
     Dates: start: 20110826, end: 20110829
  3. NALOXONE [Suspect]
     Indication: PAIN
     Dosage: 80 MG, SINGLE
     Route: 048
     Dates: start: 20110830, end: 20110830
  4. CHLORVESCENT [Concomitant]
     Indication: PRODUCT USED FOR UNKNOWN INDICATION
     Dosage: UNK
  5. WATER [Suspect]
     Indication: CONSTIPATION
     Dosage: 4 L, SEE TEXT
     Dates: start: 20110830, end: 20110830
  6. MOVICOL                            /01749801/ [Suspect]
     Indication: CONSTIPATION
     Dosage: 2 PACKET, DAILY
     Route: 048
     Dates: start: 20110826, end: 20110829
  7. NALOXONE [Suspect]
     Indication: CONSTIPATION

REACTIONS (5)
  - FALL [None]
  - CHEST PAIN [None]
  - VOMITING [None]
  - HEAD INJURY [None]
  - DIARRHOEA [None]
